FAERS Safety Report 8067106-X (Version None)
Quarter: 2012Q1

REPORT INFORMATION
  Report Type: 
  Country: None (occurrence: None)
  Receive Date: 20120124
  Receipt Date: 20120109
  Transmission Date: 20120608
  Serious: Yes (Other)
  Sender: FDA-Public Use
  Company Number: IT-ARROW GEN-2012-00904

PATIENT
  Age: 82 Year
  Sex: Female

DRUGS (3)
  1. IBUPROFEN [Suspect]
     Indication: BLADDER CANCER
     Route: 065
  2. CITALOPRAM HYDROBROMIDE [Suspect]
     Indication: BLADDER CANCER
     Route: 065
  3. CIPROFLOXACIN HCL [Suspect]
     Indication: BLADDER CANCER
     Route: 065

REACTIONS (1)
  - TOXIC EPIDERMAL NECROLYSIS [None]
